FAERS Safety Report 6678040-1 (Version None)
Quarter: 2010Q2

REPORT INFORMATION
  Report Type: 
  Country: None (occurrence: None)
  Receive Date: 20100412
  Receipt Date: 20100329
  Transmission Date: 20101027
  Serious: Yes (Hospitalization, Other)
  Sender: FDA-Public Use
  Company Number: PHHY2008JP11855

PATIENT
  Sex: Female
  Weight: 13 kg

DRUGS (11)
  1. CERTICAN [Suspect]
     Indication: HEART TRANSPLANT
     Dosage: 0.5 MG
     Route: 048
     Dates: start: 20060123, end: 20060130
  2. CERTICAN [Suspect]
     Dosage: 1 MG
     Route: 048
     Dates: start: 20060130, end: 20060203
  3. CERTICAN [Suspect]
     Dosage: 0.75 MG
     Route: 048
     Dates: start: 20060203, end: 20060424
  4. CERTICAN [Suspect]
     Dosage: UNK
     Dates: end: 20090202
  5. PROGRAF [Concomitant]
     Dosage: 4.8 MG
     Route: 048
  6. PROGRAF [Concomitant]
     Dosage: 4.5 MG
     Route: 048
  7. PROGRAF [Concomitant]
     Dosage: 3.0 MG
     Route: 048
  8. PROGRAF [Concomitant]
     Dosage: 4.0 MG
     Route: 048
     Dates: end: 20060424
  9. TENORMIN [Concomitant]
     Dosage: 12 MG
     Route: 048
  10. FAMOTIDINE [Concomitant]
     Dosage: 12 MG
     Route: 048
  11. SIROLIMUS [Concomitant]

REACTIONS (9)
  - COUGH [None]
  - DIARRHOEA [None]
  - HEART TRANSPLANT REJECTION [None]
  - INTERSTITIAL LUNG DISEASE [None]
  - NASOPHARYNGITIS [None]
  - NAUSEA [None]
  - PYREXIA [None]
  - RASH ERYTHEMATOUS [None]
  - RESPIRATORY SYNCYTIAL VIRUS INFECTION [None]
